FAERS Safety Report 4683331-X (Version None)
Quarter: 2005Q2

REPORT INFORMATION
  Report Type: 
  Country: None (occurrence: None)
  Receive Date: 20050602
  Receipt Date: 20050214
  Transmission Date: 20051028
  Serious: No
  Sender: FDA-Public Use
  Company Number: 200510234BWH

PATIENT
  Age: 79 Year
  Sex: Male

DRUGS (5)
  1. LEVITRA [Suspect]
     Dosage: 20 MG TOTAL DAILY, ORAL
     Route: 048
  2. LEVITRA [Suspect]
     Dosage: 30 MG, TOTAL DAILY, ORAL
     Route: 048
  3. METOPROLOL [Concomitant]
  4. CAPTOPRIL [Concomitant]
  5. LOVASTATIN [Concomitant]

REACTIONS (1)
  - DRUG INEFFECTIVE [None]
